FAERS Safety Report 20954320 (Version 1)
Quarter: 2022Q2

REPORT INFORMATION
  Report Type: Spontaneous
  Country: FR (occurrence: FR)
  Receive Date: 20220614
  Receipt Date: 20220614
  Transmission Date: 20220721
  Serious: Yes (Life-Threatening)
  Sender: FDA-Public Use
  Company Number: FR-DENTSPLY-2022SCDP000153

PATIENT
  Age: 57 Year
  Sex: Male
  Weight: 98 kg

DRUGS (5)
  1. EPINEPHRINE BITARTRATE\LIDOCAINE HYDROCHLORIDE [Suspect]
     Active Substance: EPINEPHRINE BITARTRATE\LIDOCAINE HYDROCHLORIDE
     Indication: Anaesthesia
     Dosage: 60 MILLIGRAM IN IVD
     Route: 040
     Dates: start: 20220524, end: 20220524
  2. SUFENTANIL [Suspect]
     Active Substance: SUFENTANIL
     Indication: Anaesthesia
     Dosage: 15 MICROGRAM IN IVD
     Route: 040
     Dates: start: 20220524, end: 20220524
  3. DEXAMETHASONE [Suspect]
     Active Substance: DEXAMETHASONE
     Indication: Anaesthesia
     Dosage: 8 MILLIGRAM IN IVD
     Route: 040
     Dates: start: 20220524, end: 20220524
  4. ATRACURIUM BESYLATE [Suspect]
     Active Substance: ATRACURIUM BESYLATE
     Indication: Anaesthesia
     Dosage: 50 MILLIGRAM IN IVD
     Route: 040
     Dates: start: 20220524, end: 20220524
  5. PROPOFOL LIPURO [Suspect]
     Active Substance: PROPOFOL
     Indication: Anaesthesia
     Dosage: 300 MILLIGRAM IN IVD
     Route: 040
     Dates: start: 20220524, end: 20220524

REACTIONS (1)
  - Bronchospasm [Recovered/Resolved]

NARRATIVE: CASE EVENT DATE: 20220524
